FAERS Safety Report 9538333 (Version 4)
Quarter: 2014Q2

REPORT INFORMATION
  Report Type: Report from Study
  Country: CZ (occurrence: CZ)
  Receive Date: 20130920
  Receipt Date: 20140415
  Transmission Date: 20141212
  Serious: Yes (Life-Threatening)
  Sender: FDA-Public Use
  Company Number: CZ-CELGENEUS-217-C5013-13092504

PATIENT
  Age: 42 Year
  Sex: Male
  Weight: 80.5 kg

DRUGS (5)
  1. CC-5013 [Suspect]
     Indication: DIFFUSE LARGE B-CELL LYMPHOMA
     Dosage: 15 MILLIGRAM
     Route: 048
     Dates: start: 20120528
  2. CC-5013 [Suspect]
     Dosage: 15 MILLIGRAM
     Route: 048
     Dates: end: 20130729
  3. WARFARIN [Concomitant]
     Indication: PRODUCT USED FOR UNKNOWN INDICATION
     Dosage: 5-7-5
     Route: 065
     Dates: start: 20121205, end: 20130826
  4. CIPRALEX [Concomitant]
     Indication: PRODUCT USED FOR UNKNOWN INDICATION
     Route: 065
     Dates: start: 20110516
  5. FILGRASTIM [Concomitant]
     Indication: PRODUCT USED FOR UNKNOWN INDICATION
     Dosage: 300-480
     Route: 065
     Dates: start: 20120820, end: 20130916

REACTIONS (1)
  - Leukaemia [Not Recovered/Not Resolved]
